FAERS Safety Report 17682338 (Version 2)
Quarter: 2020Q3

REPORT INFORMATION
  Report Type: Spontaneous
  Country: CA (occurrence: CA)
  Receive Date: 20200418
  Receipt Date: 20200712
  Transmission Date: 20201102
  Serious: Yes (Hospitalization, Other)
  Sender: FDA-Public Use
  Company Number: CA-TEVA-2020-CA-1223445

PATIENT
  Age: 63 Year
  Sex: Female

DRUGS (13)
  1. ELIQUIS [Concomitant]
     Active Substance: APIXABAN
     Indication: PROPHYLAXIS
  2. HUMIRA [Concomitant]
     Active Substance: ADALIMUMAB
     Route: 065
  3. ENBREL [Concomitant]
     Active Substance: ETANERCEPT
     Route: 065
  4. COSENTYX [Suspect]
     Active Substance: SECUKINUMAB
     Indication: PSORIASIS
     Route: 058
  5. ULTRAVATE [BETAMETHASONE DIPROPIONATE] [Concomitant]
  6. HYDROCORTISONE. [Concomitant]
     Active Substance: HYDROCORTISONE
     Route: 065
  7. BETAMETHASONE VALERATE. [Concomitant]
     Active Substance: BETAMETHASONE VALERATE
     Route: 065
  8. PREVEX [FELODIPINE] [Concomitant]
  9. MORPHINE SULFATE. [Suspect]
     Active Substance: MORPHINE SULFATE
     Indication: PRODUCT USED FOR UNKNOWN INDICATION
     Route: 065
  10. METHOTREXATE. [Suspect]
     Active Substance: METHOTREXATE
     Indication: PRODUCT USED FOR UNKNOWN INDICATION
     Route: 065
  11. ACITRETIN. [Concomitant]
     Active Substance: ACITRETIN
     Route: 065
  12. VARENICLINE TARTRATE [Concomitant]
     Active Substance: VARENICLINE TARTRATE
     Route: 065
  13. BETAMETHASONE DIPROPIONATE. [Concomitant]
     Active Substance: BETAMETHASONE DIPROPIONATE
     Route: 065

REACTIONS (23)
  - Weaning failure [Recovered/Resolved]
  - Diarrhoea [Recovered/Resolved]
  - Dizziness [Recovered/Resolved]
  - Injection site haemorrhage [Recovered/Resolved]
  - Pain [Recovered/Resolved]
  - Plantar fasciitis [Recovered/Resolved]
  - Rash [Not Recovered/Not Resolved]
  - Injection site pain [Recovered/Resolved]
  - Drug ineffective [Recovered/Resolved]
  - Fatigue [Recovered/Resolved]
  - Increased bronchial secretion [Recovered/Resolved]
  - Joint injury [Recovered/Resolved]
  - Restless legs syndrome [Recovered/Resolved]
  - Wound [Recovered/Resolved]
  - Pruritus [Recovered/Resolved]
  - Psoriasis [Recovered/Resolved]
  - Gait disturbance [Recovered/Resolved]
  - Injection site bruising [Recovered/Resolved]
  - Cardiac disorder [Not Recovered/Not Resolved]
  - Rash pustular [Not Recovered/Not Resolved]
  - Cough [Recovered/Resolved]
  - Joint swelling [Recovered/Resolved]
  - Peripheral swelling [Recovered/Resolved]
